FAERS Safety Report 15302304 (Version 3)
Quarter: 2018Q3

REPORT INFORMATION
  Report Type: Report from Study
  Country: BR (occurrence: BR)
  Receive Date: 20180821
  Receipt Date: 20180912
  Transmission Date: 20181010
  Serious: Yes (Other)
  Sender: FDA-Public Use
  Company Number: PHHY2018BR022283

PATIENT
  Sex: Male
  Weight: 72 kg

DRUGS (9)
  1. EXELON [Suspect]
     Active Substance: RIVASTIGMINE TARTRATE
     Indication: DEMENTIA
     Dosage: 3 MG, QD
     Route: 048
     Dates: start: 20180528, end: 201806
  2. EXELON PATCH [Suspect]
     Active Substance: RIVASTIGMINE
     Indication: MEMORY IMPAIRMENT
  3. EXELON PATCH [Suspect]
     Active Substance: RIVASTIGMINE
     Indication: DEMENTIA
     Dosage: 4.6 MG, QD PATCH 5 (CM2)
     Route: 062
  4. RISPERIDONE. [Suspect]
     Active Substance: RISPERIDONE
     Indication: AGITATION
     Dosage: 1.5 DF, QD
     Route: 065
     Dates: start: 201805, end: 201805
  5. ZOLPIDEM [Concomitant]
     Active Substance: ZOLPIDEM\ZOLPIDEM TARTRATE
     Indication: SLEEP DISORDER
     Dosage: 1 DF, QD (FOR NIGHT)
     Dates: start: 201805
  6. SIMVASTATIN. [Interacting]
     Active Substance: SIMVASTATIN
     Indication: PRODUCT USED FOR UNKNOWN INDICATION
     Route: 065
  7. ZIDER [Concomitant]
     Active Substance: MEMANTINE HYDROCHLORIDE
     Indication: PRODUCT USED FOR UNKNOWN INDICATION
     Route: 065
  8. EXELON [Interacting]
     Active Substance: RIVASTIGMINE TARTRATE
     Indication: MEMORY IMPAIRMENT
  9. VIDMAX [Suspect]
     Active Substance: TOPIRAMATE
     Indication: DEMENTIA
     Dosage: 1 DF, QD (HE USED FOR 1 WEEK)
     Route: 065
     Dates: start: 201805, end: 201805

REACTIONS (16)
  - Agitation [Recovered/Resolved]
  - Screaming [Recovered/Resolved]
  - Seizure [Recovered/Resolved]
  - Drug interaction [Unknown]
  - Drooling [Recovered/Resolved]
  - Dysphagia [Recovered/Resolved]
  - Nervousness [Recovered/Resolved]
  - Drug intolerance [Unknown]
  - Decreased appetite [Recovered/Resolved]
  - Drug hypersensitivity [Unknown]
  - Dementia [Unknown]
  - Blood pressure increased [Recovered/Resolved]
  - Paranoia [Recovered/Resolved]
  - Mental disorder [Recovered/Resolved]
  - Catatonia [Recovered/Resolved]
  - Hallucination [Recovered/Resolved]
